FAERS Safety Report 14780149 (Version 4)
Quarter: 2019Q4

REPORT INFORMATION
  Report Type: Spontaneous
  Country: US (occurrence: US)
  Receive Date: 20180419
  Receipt Date: 20191115
  Transmission Date: 20200122
  Serious: Yes (Other)
  Sender: FDA-Public Use
  Company Number: US-ASTRAZENECA-2018SE47118

PATIENT
  Age: 19951 Day
  Sex: Male
  Weight: 106.6 kg

DRUGS (50)
  1. NAPROXEN. [Concomitant]
     Active Substance: NAPROXEN
     Indication: PAIN
     Dates: start: 2014
  2. FLUNISOLIDE. [Concomitant]
     Active Substance: FLUNISOLIDE
     Dates: start: 20080506
  3. GLIPIZIDE. [Concomitant]
     Active Substance: GLIPIZIDE
     Dates: start: 20080506
  4. DICYCLOMINE [Concomitant]
     Active Substance: DICYCLOMINE HYDROCHLORIDE
     Dates: start: 20080725, end: 20081027
  5. ZOCOR [Concomitant]
     Active Substance: SIMVASTATIN
     Dates: start: 20130308, end: 20130627
  6. ZESTRIL [Concomitant]
     Active Substance: LISINOPRIL
     Dates: start: 20130328, end: 20130829
  7. ROBAXIN [Concomitant]
     Active Substance: METHOCARBAMOL
     Dates: start: 20140505
  8. AMITRIPTYLINE [Concomitant]
     Active Substance: AMITRIPTYLINE
  9. NADOLOL. [Concomitant]
     Active Substance: NADOLOL
  10. NEXIUM [Suspect]
     Active Substance: ESOMEPRAZOLE MAGNESIUM
     Route: 048
     Dates: start: 2012, end: 2017
  11. IBUPROFEN. [Concomitant]
     Active Substance: IBUPROFEN
     Dates: start: 20070807
  12. CLINDAMYCIN. [Concomitant]
     Active Substance: CLINDAMYCIN
     Dates: start: 20071214
  13. CLARITIN [Concomitant]
     Active Substance: LORATADINE
     Dates: start: 20080506
  14. CIALIS [Concomitant]
     Active Substance: TADALAFIL
     Dates: start: 20130712
  15. VANTIN [Concomitant]
     Active Substance: CEFPODOXIME PROXETIL
     Dates: start: 20140422
  16. DOCUSATE SODIUM. [Concomitant]
     Active Substance: DOCUSATE SODIUM
  17. DOMEBORO [Concomitant]
     Active Substance: ALUMINUM ACETATE
  18. PRILOSEC [Suspect]
     Active Substance: OMEPRAZOLE MAGNESIUM
     Route: 048
     Dates: start: 20140306
  19. ZANTAC [Concomitant]
     Active Substance: RANITIDINE HYDROCHLORIDE
  20. METOPROLOL. [Concomitant]
     Active Substance: METOPROLOL
  21. SODIUM BICARBONATE. [Concomitant]
     Active Substance: SODIUM BICARBONATE
  22. PRILOSEC [Suspect]
     Active Substance: OMEPRAZOLE MAGNESIUM
     Route: 048
  23. TYLENOL [Concomitant]
     Active Substance: ACETAMINOPHEN
     Indication: HEADACHE
     Dates: start: 2008, end: 2012
  24. PEPCID [Concomitant]
     Active Substance: FAMOTIDINE
  25. VIAGRA [Concomitant]
     Active Substance: SILDENAFIL CITRATE
     Dates: start: 20070907
  26. CIPRO [Concomitant]
     Active Substance: CIPROFLOXACIN HYDROCHLORIDE
     Dates: start: 20130731, end: 20130805
  27. AMLODIPINE BESYLATE. [Concomitant]
     Active Substance: AMLODIPINE BESYLATE
  28. NITROGLYCERIN. [Concomitant]
     Active Substance: NITROGLYCERIN
  29. METFORMIN [Concomitant]
     Active Substance: METFORMIN HYDROCHLORIDE
     Dates: start: 20061219
  30. HYDROXYZINE [Concomitant]
     Active Substance: HYDROXYZINE HYDROCHLORIDE
     Dates: start: 20071214, end: 20080115
  31. BETADINE [Concomitant]
     Active Substance: POVIDONE-IODINE
  32. CHANTIX [Concomitant]
     Active Substance: VARENICLINE TARTRATE
     Dates: start: 20130712
  33. AURALGAN [Concomitant]
     Dates: start: 20130712
  34. COREG [Concomitant]
     Active Substance: CARVEDILOL
     Dates: start: 20140422
  35. APRESOLINE HYDROCHLORIDE [Concomitant]
     Active Substance: HYDRALAZINE HYDROCHLORIDE
     Dates: start: 20130728
  36. CORTISPORIN [Concomitant]
     Active Substance: BACITRACIN ZINC\HYDROCORTISONE\NEOMYCIN SULFATE\POLYMYXIN B SULFATE
  37. PRILOSEC [Suspect]
     Active Substance: OMEPRAZOLE MAGNESIUM
     Route: 048
     Dates: start: 20150306
  38. PREDNISONE. [Concomitant]
     Active Substance: PREDNISONE
     Dates: start: 20071214, end: 20080115
  39. NORVASC [Concomitant]
     Active Substance: AMLODIPINE BESYLATE
     Dates: start: 20140306
  40. ULTRAM [Concomitant]
     Active Substance: TRAMADOL HYDROCHLORIDE
     Dates: start: 20140422
  41. FUROSEMIDE. [Concomitant]
     Active Substance: FUROSEMIDE
  42. AMOXICILLIN. [Concomitant]
     Active Substance: AMOXICILLIN
  43. NEXIUM [Suspect]
     Active Substance: ESOMEPRAZOLE MAGNESIUM
     Route: 048
     Dates: start: 20070126
  44. GLUCOVANCE [Concomitant]
     Active Substance: GLYBURIDE\METFORMIN HYDROCHLORIDE
     Dosage: 5-500 MG
     Dates: start: 20071026
  45. TESSALON [Concomitant]
     Active Substance: BENZONATATE
     Dates: start: 20140422
  46. TRAMADOL. [Concomitant]
     Active Substance: TRAMADOL
  47. VITAMIN D3 [Concomitant]
     Active Substance: CHOLECALCIFEROL
  48. ZOFRAN [Concomitant]
     Active Substance: ONDANSETRON HYDROCHLORIDE
  49. CLOPIDOGREL [Concomitant]
     Active Substance: CLOPIDOGREL BISULFATE
  50. CYCLOBENZAPRINE. [Concomitant]
     Active Substance: CYCLOBENZAPRINE

REACTIONS (6)
  - Renal failure [Unknown]
  - End stage renal disease [Unknown]
  - Acute kidney injury [Not Recovered/Not Resolved]
  - Chronic kidney disease [Unknown]
  - Hyperparathyroidism secondary [Unknown]
  - Nephrogenic anaemia [Unknown]

NARRATIVE: CASE EVENT DATE: 20130320
